FAERS Safety Report 20480885 (Version 1)
Quarter: 2022Q1

REPORT INFORMATION
  Report Type: Spontaneous
  Country: US (occurrence: US)
  Receive Date: 20220216
  Receipt Date: 20220216
  Transmission Date: 20220423
  Serious: Yes (Other)
  Sender: FDA-Public Use
  Company Number: US-OTSUKA-2021_014494

PATIENT
  Age: 5 Month
  Sex: Female

DRUGS (20)
  1. BUSULFAN [Suspect]
     Active Substance: BUSULFAN
     Indication: Bone marrow conditioning regimen
     Dosage: 1.1 MG/KG EVERY 6 HOURS ON DAYS -6 TO -4
     Route: 042
  2. BUSULFAN [Suspect]
     Active Substance: BUSULFAN
     Indication: Stem cell transplant
  3. BUSULFAN [Suspect]
     Active Substance: BUSULFAN
     Indication: Acute myeloid leukaemia
  4. THIOTEPA [Suspect]
     Active Substance: THIOTEPA
     Indication: Bone marrow conditioning regimen
     Dosage: 10 MG/KG, QD ON DAYS -8 AND - 7
     Route: 042
  5. THIOTEPA [Suspect]
     Active Substance: THIOTEPA
     Indication: Stem cell transplant
  6. THIOTEPA [Suspect]
     Active Substance: THIOTEPA
     Indication: Acute myeloid leukaemia
  7. CYCLOPHOSPHAMIDE [Suspect]
     Active Substance: CYCLOPHOSPHAMIDE
     Indication: Bone marrow conditioning regimen
     Dosage: 60 MG/KG, QD ON DAYS -3 TO -2 WITH MESNA.
     Route: 042
  8. CYCLOPHOSPHAMIDE [Suspect]
     Active Substance: CYCLOPHOSPHAMIDE
     Indication: Stem cell transplant
  9. CYCLOPHOSPHAMIDE [Suspect]
     Active Substance: CYCLOPHOSPHAMIDE
     Indication: Acute myeloid leukaemia
  10. TACROLIMUS [Suspect]
     Active Substance: TACROLIMUS
     Indication: Prophylaxis against graft versus host disease
     Dosage: UNK
     Route: 065
  11. METHOTREXATE [Suspect]
     Active Substance: METHOTREXATE
     Indication: Prophylaxis against graft versus host disease
     Dosage: UNK
     Route: 065
  12. CYTARABINE [Concomitant]
     Active Substance: CYTARABINE
     Indication: Acute myeloid leukaemia
     Dosage: 3.3MG/KG/Q12H (BID) ((INDUCTION I)
     Route: 037
  13. CYTARABINE [Concomitant]
     Active Substance: CYTARABINE
     Dosage: 20 MG DAY 1 ((INDUCTION I)
     Route: 037
  14. CYTARABINE [Concomitant]
     Active Substance: CYTARABINE
     Dosage: 33 MG/KG/Q12H DAYS 1 TO 4 (INDUCTION II)
     Route: 037
  15. CYTARABINE [Concomitant]
     Active Substance: CYTARABINE
     Dosage: 33 MG/KG/Q12H DAYS 1 TO  (INTENSIFICATION I)
     Route: 037
  16. CYTARABINE [Concomitant]
     Active Substance: CYTARABINE
     Dosage: 20 MG EVERY 2 WEEKS FOR A TOTAL OF 12 DOSES (PLUS 30 DAYS AFTER TRANSPLANT)
     Route: 065
  17. DAUNORUBICIN [Concomitant]
     Active Substance: DAUNORUBICIN
     Indication: Acute myeloid leukaemia
     Dosage: 1.7 MG/KG DAYS 1, 3, 5
     Route: 065
  18. ETOPOSIDE [Concomitant]
     Active Substance: ETOPOSIDE
     Indication: Acute myeloid leukaemia
     Dosage: 3.3 MG/KG QD DAYS 1 TO 5
     Route: 065
  19. ETOPOSIDE [Concomitant]
     Active Substance: ETOPOSIDE
     Dosage: 5 MG/KG, QD DAYS 1 TO 5 (INTENSIFICATION I)
     Route: 065
  20. MITOXANTRONE [Concomitant]
     Active Substance: MITOXANTRONE HYDROCHLORIDE
     Indication: Acute myeloid leukaemia
     Dosage: 0.4 MG/KG, QD  DAYS 3 TO 6,
     Route: 065

REACTIONS (2)
  - Venoocclusive liver disease [Recovered/Resolved]
  - Product use in unapproved indication [Unknown]
